FAERS Safety Report 24285768 (Version 1)
Quarter: 2024Q3

REPORT INFORMATION
  Report Type: Spontaneous
  Country: US (occurrence: None)
  Receive Date: 20240902
  Receipt Date: 20240902
  Transmission Date: 20241017
  Serious: Yes (Hospitalization)
  Sender: Public
  Company Number: None

PATIENT
  Sex: Male

DRUGS (1)
  1. SYMTUZA [Suspect]
     Active Substance: COBICISTAT\DARUNAVIR\EMTRICITABINE\TENOFOVIR ALAFENAMIDE
     Indication: HIV infection
     Dosage: FREQUENCY : DAILY;?TAKE 1 TABLET BY MOUTH 1 TIME A DAY.;
     Route: 048
     Dates: start: 202105

REACTIONS (2)
  - Swelling [None]
  - Blister [None]

NARRATIVE: CASE EVENT DATE: 20240823
